FAERS Safety Report 8145260-9 (Version None)
Quarter: 2012Q1

REPORT INFORMATION
  Report Type: 
  Country: None (occurrence: None)
  Receive Date: 20120214
  Receipt Date: 20120206
  Transmission Date: 20120608
  Serious: Yes (Other)
  Sender: FDA-Public Use
  Company Number: AUR-APL-2012-00817

PATIENT
  Age: 73 Year
  Sex: Female
  Weight: 47.6277 kg

DRUGS (1)
  1. ALENDRONIC ACID (ALENDRONIC ACID) [Suspect]
     Indication: OSTEOPOROSIS
     Dosage: (70 MG, 1 IN 1 WK), ORAL
     Route: 048
     Dates: start: 20120101

REACTIONS (5)
  - DIARRHOEA [None]
  - WEIGHT DECREASED [None]
  - TABLET PHYSICAL ISSUE [None]
  - GASTROINTESTINAL DISORDER [None]
  - VOMITING [None]
